FAERS Safety Report 25581917 (Version 1)
Quarter: 2025Q3

REPORT INFORMATION
  Report Type: Spontaneous
  Country: US (occurrence: US)
  Receive Date: 20250719
  Receipt Date: 20250719
  Transmission Date: 20251021
  Serious: No
  Sender: SANOFI AVENTIS
  Company Number: US-SANOFI-02592780

PATIENT
  Age: 5 Year
  Sex: Female

DRUGS (1)
  1. DUPIXENT [Suspect]
     Active Substance: DUPILUMAB
     Indication: Dermatitis atopic
     Dates: start: 202504

REACTIONS (3)
  - Eczema eyelids [Unknown]
  - Vision blurred [Unknown]
  - Swelling of eyelid [Unknown]

NARRATIVE: CASE EVENT DATE: 20250101
